FAERS Safety Report 9804176 (Version 1)
Quarter: 2014Q1

REPORT INFORMATION
  Report Type: Spontaneous
  Country: GB (occurrence: GB)
  Receive Date: 20140108
  Receipt Date: 20140108
  Transmission Date: 20141002
  Serious: Yes (Hospitalization)
  Sender: FDA-Public Use
  Company Number: PHHY2014GB001139

PATIENT
  Age: 58 Year
  Sex: Female

DRUGS (1)
  1. GENTAMICIN [Suspect]

REACTIONS (2)
  - Deafness neurosensory [Not Recovered/Not Resolved]
  - Toxicity to various agents [Unknown]
